FAERS Safety Report 6718154-0 (Version None)
Quarter: 2010Q2

REPORT INFORMATION
  Report Type: 
  Country: None (occurrence: None)
  Receive Date: 20100510
  Receipt Date: 20100428
  Transmission Date: 20101027
  Serious: Yes (Hospitalization)
  Sender: FDA-Public Use
  Company Number: IT-PFIZER INC-2010054050

PATIENT
  Age: 31 Year
  Sex: Female

DRUGS (1)
  1. DIFLUCAN [Suspect]
     Indication: CANDIDIASIS
     Dosage: 100 MG, X/DAY
     Route: 048
     Dates: start: 20100401, end: 20100404

REACTIONS (2)
  - ERYTHEMA [None]
  - PRURITUS [None]
